FAERS Safety Report 4901580-X (Version None)
Quarter: 2006Q1

REPORT INFORMATION
  Report Type: 
  Country: None (occurrence: None)
  Receive Date: 20060206
  Receipt Date: 20050422
  Transmission Date: 20060701
  Serious: No
  Sender: FDA-Public Use
  Company Number: US-BRISTOL-MYERS SQUIBB COMPANY-12944112

PATIENT
  Age: 56 Year
  Sex: Female
  Weight: 83 kg

DRUGS (8)
  1. TAXOL [Suspect]
     Indication: BREAST CANCER
     Dosage: START DATE:  18-FEB-2005
     Dates: start: 20050308, end: 20050308
  2. TAXOL [Suspect]
     Dates: start: 20050101, end: 20050101
  3. TAXOL [Suspect]
     Dates: start: 20050422, end: 20050422
  4. DECADRON PHOSPHATE [Concomitant]
     Indication: PREMEDICATION
  5. BENADRYL [Concomitant]
     Indication: PREMEDICATION
  6. CIMETIDINE [Concomitant]
     Indication: PREMEDICATION
  7. HYDROCHLOROTHIAZIDE [Concomitant]
  8. LISINOPRIL [Concomitant]

REACTIONS (2)
  - ERYTHEMA [None]
  - FOLLICULITIS [None]
